FAERS Safety Report 4977562-9 (Version None)
Quarter: 2006Q2

REPORT INFORMATION
  Report Type: 
  Country: None (occurrence: None)
  Receive Date: 20060414
  Receipt Date: 20060405
  Transmission Date: 20061013
  Serious: Yes (Death, Hospitalization)
  Sender: FDA-Public Use
  Company Number: 2006-04-0229

PATIENT
  Age: 42 Year
  Sex: Male

DRUGS (1)
  1. VIRAFERONPEG [Suspect]
     Dosage: SUBCUTANEOUS
     Route: 058

REACTIONS (1)
  - ENDOCARDITIS [None]
